FAERS Safety Report 4713335-X (Version None)
Quarter: 2005Q3

REPORT INFORMATION
  Report Type: 
  Country: None (occurrence: None)
  Receive Date: 20050713
  Receipt Date: 20050707
  Transmission Date: 20060218
  Serious: Yes (Other)
  Sender: FDA-Public Use
  Company Number: GB-GLAXOSMITHKLINE-B0387089A

PATIENT
  Age: 59 Year
  Sex: Female

DRUGS (2)
  1. IMIGRAN [Suspect]
     Indication: MIGRAINE
     Dosage: 50MG AS REQUIRED
     Dates: start: 19980101
  2. ATENOLOL [Concomitant]

REACTIONS (1)
  - ANGIONEUROTIC OEDEMA [None]
